FAERS Safety Report 10381399 (Version 1)
Quarter: 2014Q3

REPORT INFORMATION
  Report Type: Spontaneous
  Country: US (occurrence: None)
  Receive Date: 20140812
  Receipt Date: 20140812
  Transmission Date: 20150326
  Serious: Yes (Life-Threatening)
  Sender: FDA-Public Use
  Company Number: None

PATIENT
  Age: 67 Year
  Sex: Male
  Weight: 94.8 kg

DRUGS (1)
  1. ADALIMUMAB [Suspect]
     Active Substance: ADALIMUMAB
     Indication: RHEUMATOID ARTHRITIS
     Dosage: 40 MG OTHER SQ
     Route: 058
     Dates: start: 20080801, end: 20140523

REACTIONS (10)
  - Blood lactate dehydrogenase increased [None]
  - Pain [None]
  - Neuralgia [None]
  - B-cell lymphoma [None]
  - Gait disturbance [None]
  - Hepatotoxicity [None]
  - Night sweats [None]
  - Dyspnoea [None]
  - Nephrolithiasis [None]
  - Pyrexia [None]

NARRATIVE: CASE EVENT DATE: 20140604
